FAERS Safety Report 21801782 (Version 1)
Quarter: 2022Q4

REPORT INFORMATION
  Report Type: Spontaneous
  Country: US (occurrence: US)
  Receive Date: 20221230
  Receipt Date: 20221230
  Transmission Date: 20230113
  Serious: Yes (Hospitalization, Other)
  Sender: FDA-Public Use
  Company Number: US-ALLERGAN-2242291US

PATIENT
  Sex: Male
  Weight: 90.718 kg

DRUGS (1)
  1. VIBERZI [Suspect]
     Active Substance: ELUXADOLINE
     Indication: Irritable bowel syndrome
     Route: 048

REACTIONS (6)
  - Spinal operation [Recovering/Resolving]
  - Lumbar vertebral fracture [Recovering/Resolving]
  - Fall [Recovered/Resolved]
  - Radiculopathy [Recovering/Resolving]
  - Weight decreased [Unknown]
  - Back pain [Recovering/Resolving]

NARRATIVE: CASE EVENT DATE: 20220922
